FAERS Safety Report 9879225 (Version 1)
Quarter: 2014Q1

REPORT INFORMATION
  Report Type: Spontaneous
  Country: US (occurrence: US)
  Receive Date: 20140206
  Receipt Date: 20140206
  Transmission Date: 20141002
  Serious: No
  Sender: FDA-Public Use
  Company Number: US-ALLERGAN-1314691US

PATIENT
  Age: 28 Year
  Sex: Female

DRUGS (2)
  1. BOTOX COSMETIC [Suspect]
     Indication: SKIN WRINKLING
     Dosage: 15 UNITS, SINGLE
     Route: 030
     Dates: start: 20130910, end: 20130910
  2. BOTOX COSMETIC [Suspect]
     Indication: SKIN WRINKLING
     Dosage: 6 UNITS, SINGLE
     Route: 030
     Dates: start: 20130910, end: 20130910

REACTIONS (8)
  - Dermatitis [Unknown]
  - Dermatitis [Unknown]
  - Wrong technique in drug usage process [Unknown]
  - Rash papular [Unknown]
  - Rash papular [Unknown]
  - Rash pustular [Unknown]
  - Rash pustular [Unknown]
  - Rash [Unknown]
